FAERS Safety Report 12186465 (Version 3)
Quarter: 2016Q2

REPORT INFORMATION
  Report Type: Spontaneous
  Country: US (occurrence: US)
  Receive Date: 20160317
  Receipt Date: 20160607
  Transmission Date: 20160815
  Serious: No
  Sender: FDA-Public Use
  Company Number: PHEH2016US006118

PATIENT
  Age: 67 Year
  Sex: Female
  Weight: 99.77 kg

DRUGS (1)
  1. COSENTYX [Suspect]
     Active Substance: SECUKINUMAB
     Indication: PSORIASIS
     Dosage: 300 MG, QW FOR 5 WEEKS
     Route: 058
     Dates: start: 201511

REACTIONS (2)
  - Rash [Unknown]
  - Rash morbilliform [Recovered/Resolved]

NARRATIVE: CASE EVENT DATE: 201511
